FAERS Safety Report 14225311 (Version 1)
Quarter: 2017Q4

REPORT INFORMATION
  Report Type: Spontaneous
  Country: US (occurrence: None)
  Receive Date: 20171122
  Receipt Date: 20171122
  Transmission Date: 20180321
  Serious: Yes (Hospitalization)
  Sender: FDA-Public Use
  Company Number: None

PATIENT
  Age: 40 Year
  Sex: Female

DRUGS (1)
  1. OCREVUS [Suspect]
     Active Substance: OCRELIZUMAB
     Indication: MULTIPLE SCLEROSIS
     Dosage: FREQUENCY - ON DAY 1 AND DAY 15
     Route: 042
     Dates: start: 20170519, end: 20171121

REACTIONS (1)
  - Lung disorder [None]

NARRATIVE: CASE EVENT DATE: 20171121
